FAERS Safety Report 12070350 (Version 4)
Quarter: 2016Q2

REPORT INFORMATION
  Report Type: Spontaneous
  Country: US (occurrence: US)
  Receive Date: 20160211
  Receipt Date: 20160422
  Transmission Date: 20160815
  Serious: Yes (Other)
  Sender: FDA-Public Use
  Company Number: US-GLAXOSMITHKLINE-US2016GSK018359

PATIENT
  Sex: Female

DRUGS (5)
  1. LAMICTAL [Suspect]
     Active Substance: LAMOTRIGINE
     Dosage: 150 MG, BID
     Route: 048
     Dates: start: 20070727
  2. LAMICTAL [Suspect]
     Active Substance: LAMOTRIGINE
     Indication: SEIZURE
     Dosage: UNK
     Route: 048
     Dates: end: 20150612
  3. LAMOTRIGINE. [Suspect]
     Active Substance: LAMOTRIGINE
     Indication: EPILEPSY
     Dosage: 300 MG, BID
     Route: 065
     Dates: start: 20070520
  4. LAMICTAL [Suspect]
     Active Substance: LAMOTRIGINE
     Dosage: 100 MG, U
     Route: 048
     Dates: start: 20051201
  5. LAMOTRIGINE. [Suspect]
     Active Substance: LAMOTRIGINE
     Dosage: 100 MG, U
     Route: 065
     Dates: start: 20070521, end: 20150612

REACTIONS (13)
  - Stevens-Johnson syndrome [Unknown]
  - Fungal infection [Unknown]
  - Dermatitis [Unknown]
  - Rash [Unknown]
  - Vulvovaginal candidiasis [Unknown]
  - Skin candida [Unknown]
  - Urticaria [Recovering/Resolving]
  - Vulvovaginal pruritus [Unknown]
  - Anal pruritus [Unknown]
  - Atrophic vulvovaginitis [Unknown]
  - Rash generalised [Unknown]
  - Candida infection [Recovering/Resolving]
  - Tinea cruris [Unknown]
